FAERS Safety Report 7495414-X (Version None)
Quarter: 2011Q2

REPORT INFORMATION
  Report Type: 
  Country: None (occurrence: None)
  Receive Date: 20110513
  Receipt Date: 20110427
  Transmission Date: 20111010
  Serious: Yes (Other)
  Sender: FDA-Public Use
  Company Number: TCI2011A02605

PATIENT
  Age: 66 Year
  Sex: Female

DRUGS (3)
  1. TALION (BEPOTASTINE BESILATE) [Concomitant]
  2. ROZEREM [Suspect]
     Indication: INSOMNIA
     Dosage: 8 MG (8 MG, 1 IN 1 D) PER ORAL
     Route: 048
     Dates: start: 20110124, end: 20110125
  3. PERIACTIN [Concomitant]

REACTIONS (3)
  - MUSCLE SPASMS [None]
  - PARAESTHESIA [None]
  - CONVULSION [None]
